FAERS Safety Report 16705759 (Version 1)
Quarter: 2019Q3

REPORT INFORMATION
  Report Type: Spontaneous
  Country: US (occurrence: US)
  Receive Date: 20190815
  Receipt Date: 20190815
  Transmission Date: 20191004
  Serious: Yes (Other)
  Sender: FDA-Public Use
  Company Number: US-PFIZER INC-2019345652

PATIENT
  Age: 76 Year
  Sex: Male
  Weight: 70.31 kg

DRUGS (1)
  1. TIKOSYN [Suspect]
     Active Substance: DOFETILIDE
     Indication: CARDIAC FAILURE CONGESTIVE
     Dosage: 0.5 MG, 2X/DAY
     Route: 048

REACTIONS (4)
  - Nasopharyngitis [Unknown]
  - Abdominal discomfort [Unknown]
  - Bronchitis [Recovering/Resolving]
  - Pneumonia [Recovering/Resolving]

NARRATIVE: CASE EVENT DATE: 201902
